FAERS Safety Report 7875557-9 (Version None)
Quarter: 2011Q4

REPORT INFORMATION
  Report Type: 
  Country: None (occurrence: None)
  Receive Date: 20111031
  Receipt Date: 20111021
  Transmission Date: 20120403
  Serious: Yes (Death, Other)
  Sender: FDA-Public Use
  Company Number: GB-NAPPMUNDI-GBR-2011-0008941

PATIENT
  Age: 48 Year
  Sex: Female

DRUGS (3)
  1. BUTRANS [Interacting]
     Dosage: 20 MCG, Q1H
     Route: 062
  2. BUTRANS [Suspect]
     Indication: BACK PAIN
     Dosage: 10 MCG, Q1H
     Route: 062
  3. ANTIPSYCHOTICS [Interacting]
     Indication: PRODUCT USED FOR UNKNOWN INDICATION
     Route: 065

REACTIONS (5)
  - FATIGUE [None]
  - FEELING OF BODY TEMPERATURE CHANGE [None]
  - SOMNOLENCE [None]
  - DEATH [None]
  - DRUG INTERACTION [None]
